FAERS Safety Report 7864894-X (Version None)
Quarter: 2011Q4

REPORT INFORMATION
  Report Type: 
  Country: None (occurrence: None)
  Receive Date: 20111028
  Receipt Date: 20100914
  Transmission Date: 20120403
  Serious: No
  Sender: FDA-Public Use
  Company Number: US-GLAXOSMITHKLINE-A0881093A

PATIENT
  Age: 84 Year
  Sex: Female

DRUGS (9)
  1. NITROGLYCERIN [Concomitant]
  2. ASPIRIN [Concomitant]
  3. NEXIUM [Concomitant]
  4. PLAVIX [Concomitant]
  5. TOPROL-XL [Concomitant]
  6. ADVAIR DISKUS 100/50 [Suspect]
     Indication: DYSPNOEA
     Dosage: 1PUFF TWICE PER DAY
     Route: 055
     Dates: start: 20100910
  7. CARDIZEM [Concomitant]
  8. PRAVASTATIN [Concomitant]
  9. ISOSORBIDE DINITRATE [Concomitant]

REACTIONS (6)
  - VOMITING [None]
  - NAUSEA [None]
  - DIARRHOEA [None]
  - DRY MOUTH [None]
  - TONGUE COATED [None]
  - DYSPHONIA [None]
